FAERS Safety Report 6419304-6 (Version None)
Quarter: 2009Q4

REPORT INFORMATION
  Report Type: 
  Country: None (occurrence: None)
  Receive Date: 20091029
  Receipt Date: 20091021
  Transmission Date: 20100525
  Serious: Yes (Hospitalization)
  Sender: FDA-Public Use
  Company Number: US-ELI_LILLY_AND_COMPANY-US200910005111

PATIENT
  Sex: Female

DRUGS (4)
  1. HUMALOG [Suspect]
  2. HUMALOG MIX 75/25 [Suspect]
     Dosage: 5 U, DAILY (1/D)
  3. METFORMIN HCL [Concomitant]
     Dosage: UNK, UNK
  4. GLYBURIDE [Concomitant]
     Dosage: UNK, UNK

REACTIONS (3)
  - CARDIAC FAILURE CONGESTIVE [None]
  - DRUG DISPENSING ERROR [None]
  - WRONG DRUG ADMINISTERED [None]
